FAERS Safety Report 7629121-7 (Version None)
Quarter: 2011Q3

REPORT INFORMATION
  Report Type: 
  Country: None (occurrence: None)
  Receive Date: 20110722
  Receipt Date: 20110714
  Transmission Date: 20111222
  Serious: Yes (Other)
  Sender: FDA-Public Use
  Company Number: US-CEPHALON-2011003722

PATIENT
  Sex: Female

DRUGS (1)
  1. NUVIGIL [Suspect]
     Indication: NARCOLEPSY
     Route: 048

REACTIONS (8)
  - MUSCULAR WEAKNESS [None]
  - DIZZINESS [None]
  - FATIGUE [None]
  - NAUSEA [None]
  - DISORIENTATION [None]
  - SINUS TACHYCARDIA [None]
  - HEART RATE INCREASED [None]
  - PARAESTHESIA [None]
